FAERS Safety Report 4598586-X (Version None)
Quarter: 2005Q1

REPORT INFORMATION
  Report Type: 
  Country: None (occurrence: None)
  Receive Date: 20050304
  Receipt Date: 20050221
  Transmission Date: 20050727
  Serious: Yes (Other)
  Sender: FDA-Public Use
  Company Number: GB-ROCHE-396236

PATIENT
  Age: 56 Year
  Sex: Female

DRUGS (2)
  1. TAMIFLU [Suspect]
     Indication: PROPHYLAXIS
     Route: 048
     Dates: start: 20050128, end: 20050203
  2. INHALER NOS [Concomitant]

REACTIONS (3)
  - NAUSEA [None]
  - PROTEINURIA [None]
  - VOMITING [None]
